FAERS Safety Report 6399796-1 (Version None)
Quarter: 2009Q4

REPORT INFORMATION
  Report Type: 
  Country: None (occurrence: None)
  Receive Date: 20091014
  Receipt Date: 20071130
  Transmission Date: 20100525
  Serious: Yes (Death, Hospitalization)
  Sender: FDA-Public Use
  Company Number: US-ASTRAZENECA-2006UW21159

PATIENT
  Age: 25360 Day
  Sex: Female
  Weight: 71.7 kg

DRUGS (35)
  1. SEROQUEL [Suspect]
     Indication: DEMENTIA
     Route: 048
     Dates: start: 20030613, end: 20030613
  2. SEROQUEL [Suspect]
     Indication: DELUSION
     Route: 048
     Dates: start: 20030613, end: 20030613
  3. SEROQUEL [Suspect]
     Indication: SLEEP DISORDER
     Route: 048
     Dates: start: 20030613, end: 20030613
  4. SEROQUEL [Suspect]
     Dosage: 100 MG-200 MG
     Route: 048
     Dates: start: 20030613
  5. SEROQUEL [Suspect]
     Dosage: 100 MG-200 MG
     Route: 048
     Dates: start: 20030613
  6. SEROQUEL [Suspect]
     Dosage: 100 MG-200 MG
     Route: 048
     Dates: start: 20030613
  7. SEROQUEL [Suspect]
     Route: 048
     Dates: start: 20030614, end: 20030617
  8. SEROQUEL [Suspect]
     Route: 048
     Dates: start: 20030614, end: 20030617
  9. SEROQUEL [Suspect]
     Route: 048
     Dates: start: 20030614, end: 20030617
  10. SEROQUEL [Suspect]
     Route: 048
     Dates: start: 20030618, end: 20030724
  11. SEROQUEL [Suspect]
     Route: 048
     Dates: start: 20030618, end: 20030724
  12. SEROQUEL [Suspect]
     Route: 048
     Dates: start: 20030618, end: 20030724
  13. SEROQUEL [Suspect]
     Route: 048
     Dates: start: 20030725, end: 20031220
  14. SEROQUEL [Suspect]
     Route: 048
     Dates: start: 20030725, end: 20031220
  15. SEROQUEL [Suspect]
     Route: 048
     Dates: start: 20030725, end: 20031220
  16. RISPERDAL [Concomitant]
     Dates: end: 20030613
  17. CELEXA [Concomitant]
     Dates: start: 20011207, end: 20020701
  18. NEPRO [Concomitant]
     Route: 048
  19. TYLENOL (CAPLET) [Concomitant]
     Indication: PAIN
     Route: 048
     Dates: start: 20030728
  20. PHOSLO [Concomitant]
  21. PROTONIX [Concomitant]
  22. REGLAN [Concomitant]
  23. ARICEPT [Concomitant]
     Route: 048
  24. PAXIL [Concomitant]
     Route: 048
  25. NORVASC [Concomitant]
     Route: 048
  26. NPH INSULIN [Concomitant]
  27. HUMULIN R [Concomitant]
     Dosage: 5-15 IU
     Dates: start: 20030704
  28. DIGOXIN [Concomitant]
  29. MAVIK [Concomitant]
     Route: 048
  30. MINOXIDIL [Concomitant]
     Indication: HYPERTENSION
     Route: 048
     Dates: start: 20030728
  31. VASOTEC [Concomitant]
     Indication: HYPERTENSION
     Route: 048
     Dates: start: 20030728
  32. DILANTIN [Concomitant]
     Indication: CONVULSION
     Dates: start: 20030728
  33. TENORMIN [Concomitant]
     Indication: HYPERTENSION
     Dates: start: 20030728
  34. COUMADIN [Concomitant]
     Indication: ANTICOAGULANT THERAPY
     Dosage: 2.5 MG-5 MG
     Dates: start: 20030728
  35. ATIVAN [Concomitant]
     Indication: AGITATION
     Dosage: 1 MG-2 MG
     Route: 048
     Dates: start: 20030728

REACTIONS (15)
  - BRADYCARDIA [None]
  - CARDIAC FAILURE CONGESTIVE [None]
  - CARDIO-RESPIRATORY ARREST [None]
  - COMA [None]
  - CONVULSION [None]
  - DECUBITUS ULCER [None]
  - GASTROINTESTINAL HAEMORRHAGE [None]
  - HYPOGLYCAEMIA [None]
  - IMPAIRED GASTRIC EMPTYING [None]
  - MALNUTRITION [None]
  - RENAL FAILURE CHRONIC [None]
  - RESPIRATORY FAILURE [None]
  - SEPSIS [None]
  - STAPHYLOCOCCAL INFECTION [None]
  - VASCULAR GRAFT THROMBOSIS [None]
